FAERS Safety Report 16052778 (Version 1)
Quarter: 2019Q1

REPORT INFORMATION
  Report Type: Spontaneous
  Country: US (occurrence: US)
  Receive Date: 20190308
  Receipt Date: 20190308
  Transmission Date: 20190418
  Serious: Yes (Other)
  Sender: FDA-Public Use
  Company Number: US-TEVA-2019-US-1021638

PATIENT

DRUGS (1)
  1. QVAR REDIHALER [Suspect]
     Active Substance: BECLOMETHASONE DIPROPIONATE
     Indication: ASTHMA
     Route: 055

REACTIONS (13)
  - Somnolence [Unknown]
  - Asthma [Unknown]
  - Fatigue [Unknown]
  - Device malfunction [Unknown]
  - Product substitution issue [Unknown]
  - Drug ineffective [Unknown]
  - Sleep deficit [Unknown]
  - Sleep disorder [Unknown]
  - Disturbance in attention [Unknown]
  - Product physical issue [Unknown]
  - Sleep apnoea syndrome [Not Recovered/Not Resolved]
  - Dyspnoea [Unknown]
  - Cough [Unknown]
